FAERS Safety Report 19384370 (Version 3)
Quarter: 2021Q3

REPORT INFORMATION
  Report Type: Spontaneous
  Country: US (occurrence: US)
  Receive Date: 20210608
  Receipt Date: 20210806
  Transmission Date: 20211014
  Serious: Yes (Other)
  Sender: FDA-Public Use
  Company Number: US-AVEO ONCOLOGY-2021-AVEO-US003339

PATIENT

DRUGS (19)
  1. ATORVASTATIN [Concomitant]
     Active Substance: ATORVASTATIN
  2. OXYCODONE [Concomitant]
     Active Substance: OXYCODONE
  3. PRILOCAINE [Concomitant]
     Active Substance: PRILOCAINE
  4. FOLIC ACID. [Concomitant]
     Active Substance: FOLIC ACID
  5. FUROSEMIDE. [Concomitant]
     Active Substance: FUROSEMIDE
  6. LISINOPRIL. [Concomitant]
     Active Substance: LISINOPRIL
  7. XARELTO [Concomitant]
     Active Substance: RIVAROXABAN
  8. AMLODIPINE [Concomitant]
     Active Substance: AMLODIPINE BESYLATE
  9. FOTIVDA [Suspect]
     Active Substance: TIVOZANIB HYDROCHLORIDE
     Indication: RENAL CELL CARCINOMA
     Dosage: 1.34 MG, CYCLIC
  10. CARDURA [Concomitant]
     Active Substance: DOXAZOSIN MESYLATE
  11. LIDOCAINE. [Concomitant]
     Active Substance: LIDOCAINE
  12. LEVOTHYROXINE. [Concomitant]
     Active Substance: LEVOTHYROXINE
  13. VITAMIN D3 [Concomitant]
     Active Substance: CHOLECALCIFEROL
  14. ASPRIN [Concomitant]
     Active Substance: ASPIRIN
     Dosage: 81 MG
  15. INDOMETHACIN. [Concomitant]
     Active Substance: INDOMETHACIN
  16. CYANOCOBALAMIN. [Concomitant]
     Active Substance: CYANOCOBALAMIN
  17. ONDANSETRON [Concomitant]
     Active Substance: ONDANSETRON
  18. DOXAZOSIN [Concomitant]
     Active Substance: DOXAZOSIN MESYLATE
  19. MAGNESIUM OXIDE. [Concomitant]
     Active Substance: MAGNESIUM OXIDE

REACTIONS (7)
  - Heart rate decreased [Unknown]
  - Blood pressure increased [Unknown]
  - Dyspnoea [Unknown]
  - Respiratory rate increased [Unknown]
  - Feeling abnormal [Recovered/Resolved]
  - Nausea [Recovered/Resolved]
  - Dizziness [Recovered/Resolved]

NARRATIVE: CASE EVENT DATE: 20210527
